FAERS Safety Report 15333082 (Version 7)
Quarter: 2019Q1

REPORT INFORMATION
  Report Type: Report from Study
  Country: US (occurrence: US)
  Receive Date: 20180830
  Receipt Date: 20190130
  Transmission Date: 20190417
  Serious: Yes (Life-Threatening, Hospitalization, Disabling, Other)
  Sender: FDA-Public Use
  Company Number: US-ASTRAZENECA-2018SE94139

PATIENT
  Age: 451 Month
  Sex: Female
  Weight: 103.4 kg

DRUGS (5)
  1. JANUVIA [Concomitant]
     Active Substance: SITAGLIPTIN PHOSPHATE
  2. LANTUS [Concomitant]
     Active Substance: INSULIN GLARGINE
     Indication: TYPE 2 DIABETES MELLITUS
     Dates: start: 201808
  3. METFORMIN [Suspect]
     Active Substance: METFORMIN HYDROCHLORIDE
     Indication: TYPE 2 DIABETES MELLITUS
     Dosage: 1000 MG DAILY, NON-AZ DRUG
     Route: 065
     Dates: start: 2013
  4. GLIMIPRIDE [Concomitant]
     Active Substance: GLIMEPIRIDE
     Indication: TYPE 2 DIABETES MELLITUS
     Dates: start: 2013
  5. FARXIGA [Suspect]
     Active Substance: DAPAGLIFLOZIN PROPANEDIOL
     Indication: TYPE 2 DIABETES MELLITUS
     Route: 048
     Dates: start: 2013, end: 20180817

REACTIONS (7)
  - Pain in extremity [Not Recovered/Not Resolved]
  - Toe amputation [Recovering/Resolving]
  - Urinary tract infection [Unknown]
  - Osteomyelitis [Unknown]
  - Blindness [Not Recovered/Not Resolved]
  - Swelling [Unknown]
  - Liver disorder [Unknown]

NARRATIVE: CASE EVENT DATE: 201710
